FAERS Safety Report 24269370 (Version 3)
Quarter: 2025Q3

REPORT INFORMATION
  Report Type: Spontaneous
  Country: BR (occurrence: BR)
  Receive Date: 20240830
  Receipt Date: 20250802
  Transmission Date: 20251021
  Serious: Yes (Hospitalization, Other)
  Sender: ALEXION PHARMACEUTICALS
  Company Number: 2024A196851

PATIENT
  Sex: Male

DRUGS (1)
  1. BUDESONIDE\FORMOTEROL FUMARATE DIHYDRATE [Suspect]
     Active Substance: BUDESONIDE\FORMOTEROL FUMARATE DIHYDRATE
     Indication: Asthma
     Dosage: 6/200MCG FOR THREE TO FOUR PUFFS PER DAY
     Dates: start: 202403

REACTIONS (3)
  - Gastrointestinal carcinoma [Unknown]
  - Off label use [Not Recovered/Not Resolved]
  - Device defective [Unknown]
